FAERS Safety Report 18355220 (Version 2)
Quarter: 2020Q4

REPORT INFORMATION
  Report Type: Spontaneous
  Country: FR (occurrence: FR)
  Receive Date: 20201007
  Receipt Date: 20201214
  Transmission Date: 20210114
  Serious: Yes (Life-Threatening, Hospitalization, Other)
  Sender: FDA-Public Use
  Company Number: FR-GLAXOSMITHKLINE-FR2020195724

PATIENT
  Age: 58 Year
  Sex: Female

DRUGS (9)
  1. APROVAL [Concomitant]
     Indication: HYPERTENSION
     Dosage: UNK
     Route: 065
     Dates: start: 2016
  2. ACETYLCYSTEINE. [Suspect]
     Active Substance: ACETYLCYSTEINE
     Indication: OFF LABEL USE
     Dosage: UNK
     Route: 042
  3. ESMYA [Suspect]
     Active Substance: ULIPRISTAL ACETATE
     Indication: UTERINE LEIOMYOMA
     Dosage: 5 MG, QD
     Route: 048
     Dates: start: 20161117, end: 20170207
  4. AMLOR [Concomitant]
     Active Substance: AMLODIPINE BESYLATE
     Indication: PRODUCT USED FOR UNKNOWN INDICATION
     Dosage: UNK
     Route: 065
  5. AMLOR [Concomitant]
     Active Substance: AMLODIPINE BESYLATE
     Indication: HYPERTENSION
     Dosage: UNK
     Route: 065
  6. TAZOCILLINE [Suspect]
     Active Substance: PIPERACILLIN SODIUM\TAZOBACTAM SODIUM
     Indication: INFECTION PROPHYLAXIS
     Dosage: UNK
     Route: 065
  7. ACETYLCYSTEINE. [Suspect]
     Active Substance: ACETYLCYSTEINE
     Indication: PROPHYLAXIS
     Dosage: UNK
     Route: 042
  8. ACYCLOVIR. [Suspect]
     Active Substance: ACYCLOVIR
     Indication: PROPHYLAXIS
     Dosage: UNK
     Route: 065
  9. ESMYA [Suspect]
     Active Substance: ULIPRISTAL ACETATE
     Indication: UTERINE LEIOMYOMA
     Dosage: UNK
     Route: 048

REACTIONS (18)
  - Coagulopathy [Unknown]
  - Drug-induced liver injury [Recovered/Resolved]
  - General physical health deterioration [Unknown]
  - Product use in unapproved indication [Unknown]
  - Haemorrhoids [Unknown]
  - Jaundice [Unknown]
  - Inflammation [Unknown]
  - Hepatic cirrhosis [Recovered/Resolved]
  - Encephalopathy [Unknown]
  - Liver transplant [Unknown]
  - Off label use [Unknown]
  - Liver disorder [Unknown]
  - Autoimmune hepatitis [Recovered/Resolved]
  - Necrosis [Unknown]
  - Cholestasis [Unknown]
  - Renal impairment [Unknown]
  - Condition aggravated [Unknown]
  - Model for end stage liver disease score increased [Unknown]

NARRATIVE: CASE EVENT DATE: 20170223
